FAERS Safety Report 19658857 (Version 1)
Quarter: 2021Q3

REPORT INFORMATION
  Report Type: Other
  Country: CA (occurrence: CA)
  Receive Date: 20210805
  Receipt Date: 20210805
  Transmission Date: 20211014
  Serious: Yes (Other)
  Sender: FDA-Public Use
  Company Number: CA-CELLTRION INC.-2021CA010138

PATIENT

DRUGS (14)
  1. CALCIUM [Concomitant]
     Active Substance: CALCIUM
  2. DESOXIMETASONE. [Concomitant]
     Active Substance: DESOXIMETASONE
  3. HYDROMORPH CONTIN [Concomitant]
     Active Substance: HYDROMORPHONE
     Dosage: CAPSULE, SUSTAINED RELEASE
  4. MELOXICAM. [Concomitant]
     Active Substance: MELOXICAM
  5. RITUXIMAB (UNKNOWN) [Suspect]
     Active Substance: RITUXIMAB
     Indication: RHEUMATOID ARTHRITIS
     Dosage: 1000 MG
     Route: 042
  6. FOLIC ACID. [Concomitant]
     Active Substance: FOLIC ACID
  7. METHYLPREDNISOLONE. [Concomitant]
     Active Substance: METHYLPREDNISOLONE
     Indication: PREMEDICATION
     Dosage: 100 MG
     Route: 042
  8. METHOTREXATE. [Concomitant]
     Active Substance: METHOTREXATE
     Route: 048
  9. PREDNISONE. [Concomitant]
     Active Substance: PREDNISONE
  10. TRAMACET [Concomitant]
     Active Substance: ACETAMINOPHEN\TRAMADOL
  11. ACETAMINOPHEN. [Concomitant]
     Active Substance: ACETAMINOPHEN
     Indication: PREMEDICATION
     Dosage: 650 MG
     Route: 048
  12. AZATHIOPRINE. [Concomitant]
     Active Substance: AZATHIOPRINE
  13. CETIRIZINE HYDROCHLORIDE. [Concomitant]
     Active Substance: CETIRIZINE HYDROCHLORIDE
  14. DIPHENHYDRAMINE HYDROCHLORIDE. [Concomitant]
     Active Substance: DIPHENHYDRAMINE HYDROCHLORIDE
     Indication: PREMEDICATION
     Dosage: 50 MG
     Route: 048

REACTIONS (13)
  - Blood pressure diastolic abnormal [Not Recovered/Not Resolved]
  - Tooth disorder [Not Recovered/Not Resolved]
  - Urinary tract infection [Not Recovered/Not Resolved]
  - Haemorrhoids [Not Recovered/Not Resolved]
  - Drug ineffective [Not Recovered/Not Resolved]
  - Ankle deformity [Not Recovered/Not Resolved]
  - Back pain [Not Recovered/Not Resolved]
  - Infected skin ulcer [Not Recovered/Not Resolved]
  - Nausea [Not Recovered/Not Resolved]
  - Tooth extraction [Not Recovered/Not Resolved]
  - Heart rate decreased [Not Recovered/Not Resolved]
  - Constipation [Not Recovered/Not Resolved]
  - Rash [Not Recovered/Not Resolved]
